FAERS Safety Report 19175484 (Version 3)
Quarter: 2021Q2

REPORT INFORMATION
  Report Type: Report from Study
  Country: US (occurrence: US)
  Receive Date: 20210423
  Receipt Date: 20210531
  Transmission Date: 20210717
  Serious: Yes (Other)
  Sender: FDA-Public Use
  Company Number: US-BIOVITRUM-2021US2565

PATIENT
  Age: 86 Year
  Sex: Male

DRUGS (2)
  1. KINERET [Suspect]
     Active Substance: ANAKINRA
     Indication: CHONDROCALCINOSIS
     Route: 058
     Dates: start: 20210224
  2. KINERET [Suspect]
     Active Substance: ANAKINRA
     Route: 058
     Dates: start: 202102

REACTIONS (10)
  - Device physical property issue [Unknown]
  - Product dose omission issue [Unknown]
  - Gout [Unknown]
  - Pruritus [Unknown]
  - Malaise [Unknown]
  - Fungal infection [Unknown]
  - Asthenia [Unknown]
  - Adverse event [Unknown]
  - Off label use [Not Recovered/Not Resolved]
  - Device related infection [Unknown]

NARRATIVE: CASE EVENT DATE: 20210224
